FAERS Safety Report 5776274-1 (Version None)
Quarter: 2008Q2

REPORT INFORMATION
  Report Type: 
  Country: None (occurrence: None)
  Receive Date: 20080617
  Receipt Date: 20080617
  Transmission Date: 20081010
  Serious: Yes (Hospitalization)
  Sender: FDA-Public Use
  Company Number: None

PATIENT
  Age: 66 Year
  Sex: Male
  Weight: 120 kg

DRUGS (14)
  1. DOCETAXEL [Suspect]
     Indication: PROSTATE CANCER METASTATIC
     Dosage: IV
     Route: 042
  2. PACLITAXEL [Suspect]
     Indication: PROSTATE CANCER METASTATIC
     Dosage: IV
     Route: 042
  3. ZOMETA [Concomitant]
  4. PREDNISONE [Concomitant]
  5. OXYCONTIN [Concomitant]
  6. MOTRIN [Concomitant]
  7. PERCOCET [Concomitant]
  8. FLUTAMIDE [Concomitant]
  9. COMPAZINE [Concomitant]
  10. NEURONTIN [Concomitant]
  11. WARFARIN SODIUM [Concomitant]
  12. ESTRAMUSTINE [Concomitant]
  13. CARBOPLATIN [Concomitant]
  14. TAXOL [Concomitant]

REACTIONS (2)
  - BRONCHITIS CHRONIC [None]
  - CRYPTOGENIC ORGANISING PNEUMONIA [None]
